FAERS Safety Report 5230147-1 (Version None)
Quarter: 2007Q1

REPORT INFORMATION
  Report Type: 
  Country: None (occurrence: None)
  Receive Date: 20070206
  Receipt Date: 20060825
  Transmission Date: 20070707
  Serious: No
  Sender: FDA-Public Use
  Company Number: US-GLAXOSMITHKLINE-A0618068A

PATIENT
  Sex: Female

DRUGS (5)
  1. PAXIL CR [Suspect]
     Indication: DEPRESSION
     Dosage: 12.5MG PER DAY
     Route: 048
     Dates: start: 20060824
  2. KERLONE [Concomitant]
  3. DIOVAN [Concomitant]
  4. LASIX [Concomitant]
  5. COUMADIN [Concomitant]

REACTIONS (2)
  - DIARRHOEA [None]
  - NAUSEA [None]
